FAERS Safety Report 4467905-7 (Version None)
Quarter: 2004Q4

REPORT INFORMATION
  Report Type: 
  Country: None (occurrence: None)
  Receive Date: 20041004
  Receipt Date: 20040930
  Transmission Date: 20050328
  Serious: Yes (Hospitalization)
  Sender: FDA-Public Use
  Company Number: MK200409-0233-1

PATIENT
  Age: 34 Year
  Sex: Male

DRUGS (1)
  1. FLUOXETINE [Suspect]

REACTIONS (8)
  - ANGER [None]
  - ANXIETY [None]
  - CHOREA [None]
  - CONDITION AGGRAVATED [None]
  - DYSPHAGIA [None]
  - HYPERHIDROSIS [None]
  - PYREXIA [None]
  - SPEECH DISORDER [None]
